FAERS Safety Report 14213358 (Version 1)
Quarter: 2017Q4

REPORT INFORMATION
  Report Type: Spontaneous
  Country: US (occurrence: US)
  Receive Date: 20171122
  Receipt Date: 20171122
  Transmission Date: 20180321
  Serious: Yes (Other)
  Sender: FDA-Public Use
  Company Number: US-ROCHE-2026578

PATIENT
  Sex: Female

DRUGS (3)
  1. XOLAIR [Suspect]
     Active Substance: OMALIZUMAB
     Dosage: ONGOING:NO
     Route: 058
     Dates: start: 201702, end: 201705
  2. XOLAIR [Suspect]
     Active Substance: OMALIZUMAB
     Indication: IDIOPATHIC URTICARIA
     Dosage: ONGOING:NO
     Route: 058
     Dates: start: 201504, end: 201702
  3. XOLAIR [Suspect]
     Active Substance: OMALIZUMAB
     Dosage: ONGOING:NO
     Route: 058
     Dates: start: 201705, end: 20170915

REACTIONS (2)
  - Urticaria [Not Recovered/Not Resolved]
  - Gastric ulcer [Unknown]

NARRATIVE: CASE EVENT DATE: 20170915
